FAERS Safety Report 14528619 (Version 1)
Quarter: 2018Q1

REPORT INFORMATION
  Report Type: Spontaneous
  Country: US (occurrence: US)
  Receive Date: 20180214
  Receipt Date: 20180214
  Transmission Date: 20180509
  Serious: Yes (Other)
  Sender: FDA-Public Use
  Company Number: US-ACCORD-063264

PATIENT
  Age: 64 Year
  Sex: Male
  Weight: 74.84 kg

DRUGS (1)
  1. MITOMYCIN. [Suspect]
     Active Substance: MITOMYCIN
     Indication: BLADDER MASS
     Dosage: FREQUENCY:ONE TIME INJECTION?RECEIVED 7 WEEKS AGO
     Route: 043
     Dates: start: 20171208, end: 20171208

REACTIONS (4)
  - Burning sensation [Not Recovered/Not Resolved]
  - Pollakiuria [Not Recovered/Not Resolved]
  - Testicular pain [Recovered/Resolved]
  - Off label use [Unknown]
